FAERS Safety Report 14056038 (Version 2)
Quarter: 2017Q4

REPORT INFORMATION
  Report Type: Report from Study
  Country: US (occurrence: US)
  Receive Date: 20171006
  Receipt Date: 20171027
  Transmission Date: 20180321
  Serious: Yes (Death, Other)
  Sender: FDA-Public Use
  Company Number: PHEH2017US032136

PATIENT
  Age: 57 Year
  Sex: Male
  Weight: 53.6 kg

DRUGS (5)
  1. ZARXIO [Suspect]
     Active Substance: FILGRASTIM-SNDZ
     Indication: LUNG NEOPLASM MALIGNANT
     Dosage: 300 UG, QW
     Route: 058
     Dates: start: 20170419, end: 20170628
  2. ABRAXANE [Concomitant]
     Active Substance: PACLITAXEL
     Indication: PULMONARY MASS
     Route: 065
  3. CARBOPLATIN. [Concomitant]
     Active Substance: CARBOPLATIN
     Indication: PULMONARY MASS
     Route: 065
  4. ZARXIO [Suspect]
     Active Substance: FILGRASTIM-SNDZ
     Indication: CHEMOTHERAPY
  5. ZARXIO [Suspect]
     Active Substance: FILGRASTIM-SNDZ
     Indication: GLOTTIS CARCINOMA

REACTIONS (10)
  - Tumour pain [Unknown]
  - Chest discomfort [Unknown]
  - Dyspnoea [Not Recovered/Not Resolved]
  - Depression [Unknown]
  - Death [Fatal]
  - Concomitant disease progression [Unknown]
  - Musculoskeletal chest pain [Unknown]
  - Oedema peripheral [Unknown]
  - Non-small cell lung cancer [Unknown]
  - Cough [Not Recovered/Not Resolved]

NARRATIVE: CASE EVENT DATE: 20170721
